FAERS Safety Report 4906390-5 (Version None)
Quarter: 2006Q1

REPORT INFORMATION
  Report Type: 
  Country: None (occurrence: None)
  Receive Date: 20060207
  Receipt Date: 20060118
  Transmission Date: 20060701
  Serious: Yes (Other)
  Sender: FDA-Public Use
  Company Number: SA200512002743

PATIENT
  Age: 12 Year
  Sex: Male

DRUGS (1)
  1. ZYPREXA [Suspect]
     Dosage: SEE IMAGE
     Route: 048

REACTIONS (3)
  - FEELING HOT [None]
  - FLUSHING [None]
  - HYPERHIDROSIS [None]
